FAERS Safety Report 7476277-5 (Version None)
Quarter: 2011Q2

REPORT INFORMATION
  Report Type: 
  Country: None (occurrence: None)
  Receive Date: 20110512
  Receipt Date: 20110503
  Transmission Date: 20111010
  Serious: Yes (Other)
  Sender: FDA-Public Use
  Company Number: DE-ASTRAZENECA-2011SE26235

PATIENT
  Sex: Male
  Weight: 85.7 kg

DRUGS (7)
  1. ASS 100 [Concomitant]
     Indication: CORONARY ARTERY DISEASE
     Route: 048
  2. ASS 100 [Concomitant]
     Indication: HYPERTENSION
     Route: 048
  3. RAMIPRIL 5 [Concomitant]
     Indication: HYPERTENSION
     Route: 048
     Dates: start: 20110424
  4. METOPROLOL SUCCINATE [Concomitant]
     Indication: HYPERTENSION
     Route: 048
  5. METOPROLOL SUCCINATE [Concomitant]
     Indication: CORONARY ARTERY DISEASE
     Route: 048
  6. BRILINTA (TICAGRELOR) [Suspect]
     Indication: ACUTE MYOCARDIAL INFARCTION
     Route: 048
     Dates: start: 20110407
  7. RAMIPRIL 5 [Concomitant]
     Indication: CORONARY ARTERY DISEASE
     Route: 048
     Dates: start: 20110424

REACTIONS (1)
  - ELECTROCARDIOGRAM QT PROLONGED [None]
